FAERS Safety Report 23951968 (Version 1)
Quarter: 2024Q2

REPORT INFORMATION
  Report Type: Spontaneous
  Country: US (occurrence: US)
  Receive Date: 20240607
  Receipt Date: 20240607
  Transmission Date: 20240715
  Serious: No
  Sender: FDA-Public Use
  Company Number: US-SANDOZ-SDZ2024US055767

PATIENT
  Sex: Female
  Weight: 47.63 kg

DRUGS (1)
  1. ESTRADIOL [Suspect]
     Active Substance: ESTRADIOL
     Indication: Menopause
     Dosage: 0.05 MG N/A DOSE EVERY N/A N/A
     Route: 062
     Dates: start: 20221104, end: 20240606

REACTIONS (2)
  - Skin irritation [Not Recovered/Not Resolved]
  - Skin burning sensation [Not Recovered/Not Resolved]
